FAERS Safety Report 21542542 (Version 2)
Quarter: 2024Q1

REPORT INFORMATION
  Report Type: Spontaneous
  Country: US (occurrence: US)
  Receive Date: 20221102
  Receipt Date: 20240229
  Transmission Date: 20240409
  Serious: No
  Sender: FDA-Public Use
  Company Number: US-RVL_Pharmaceuticals-USA-POI1255202200273

PATIENT
  Age: 69 Year
  Sex: Female

DRUGS (1)
  1. UPNEEQ [Suspect]
     Active Substance: OXYMETAZOLINE HYDROCHLORIDE
     Indication: Eyelid ptosis
     Dosage: OU
     Route: 047
     Dates: start: 20220731, end: 20220801

REACTIONS (5)
  - Foreign body sensation in eyes [Recovered/Resolved]
  - Dry eye [Recovered/Resolved]
  - Excessive eye blinking [Recovered/Resolved]
  - Off label use [Recovered/Resolved]
  - Eyelid pain [Recovered/Resolved]

NARRATIVE: CASE EVENT DATE: 20220731
